FAERS Safety Report 15370059 (Version 1)
Quarter: 2018Q3

REPORT INFORMATION
  Report Type: Spontaneous
  Country: US (occurrence: US)
  Receive Date: 20180904
  Receipt Date: 20180904
  Transmission Date: 20181010
  Serious: Yes (Life-Threatening, Hospitalization, Disabling, Other)
  Sender: FDA-Public Use
  Company Number: None

PATIENT
  Age: 57 Year
  Sex: Male
  Weight: 81 kg

DRUGS (8)
  1. AMLODIPINE [Concomitant]
     Active Substance: AMLODIPINE BESYLATE
  2. METOPROLOL. [Concomitant]
     Active Substance: METOPROLOL
  3. QUETIAPINE (SEROQUIL) [Concomitant]
  4. PEGINTERFERON ALPHA?2A [Suspect]
     Active Substance: PEGINTERFERON ALFA-2A
     Indication: HEPATITIS C
     Dosage: ?          OTHER FREQUENCY:WEEKLY;?
     Route: 030
  5. CLOPIDOGREL [Concomitant]
     Active Substance: CLOPIDOGREL BISULFATE
  6. LISINOPRIL. [Concomitant]
     Active Substance: LISINOPRIL
  7. PRAVASTATIN. [Concomitant]
     Active Substance: PRAVASTATIN
  8. ASPIRIN. [Concomitant]
     Active Substance: ASPIRIN

REACTIONS (9)
  - Mood swings [None]
  - Thinking abnormal [None]
  - Depression [None]
  - Anxiety [None]
  - Fatigue [None]
  - Suicide attempt [None]
  - Agoraphobia [None]
  - Paranoia [None]
  - Suicidal ideation [None]

NARRATIVE: CASE EVENT DATE: 20150630
